FAERS Safety Report 4912378-0 (Version None)
Quarter: 2006Q1

REPORT INFORMATION
  Report Type: 
  Country: None (occurrence: None)
  Receive Date: 20060215
  Receipt Date: 20050202
  Transmission Date: 20060701
  Serious: No
  Sender: FDA-Public Use
  Company Number: US-GLAXOSMITHKLINE-A0543501A

PATIENT
  Age: 50 Year
  Sex: Female
  Weight: 52.7 kg

DRUGS (3)
  1. VALTREX [Suspect]
     Indication: HERPES SIMPLEX
     Route: 048
     Dates: start: 20000101
  2. MULTIVITAMIN [Concomitant]
     Indication: DRUG USE FOR UNKNOWN INDICATION
  3. CONTAC [Concomitant]

REACTIONS (1)
  - GASTROINTESTINAL DISORDER [None]
